FAERS Safety Report 6297836-1 (Version None)
Quarter: 2009Q3

REPORT INFORMATION
  Report Type: 
  Country: None (occurrence: None)
  Receive Date: 20090805
  Receipt Date: 20090723
  Transmission Date: 20100115
  Serious: Yes (Other)
  Sender: FDA-Public Use
  Company Number: FR-GENENTECH-270386

PATIENT
  Sex: Female

DRUGS (10)
  1. XOLAIR [Suspect]
     Indication: ASTHMA
     Dosage: 150 MG, 1/MONTH
     Route: 058
     Dates: start: 20080826
  2. XOLAIR [Suspect]
     Dosage: UNK
     Route: 065
     Dates: start: 20080925
  3. BUDESONIDE [Concomitant]
     Indication: DRUG USE FOR UNKNOWN INDICATION
  4. LASIX [Concomitant]
     Indication: DRUG USE FOR UNKNOWN INDICATION
  5. APROVEL [Concomitant]
     Indication: DRUG USE FOR UNKNOWN INDICATION
  6. INSULIN ASPART [Concomitant]
     Indication: DRUG USE FOR UNKNOWN INDICATION
  7. HYPERIUM [Concomitant]
     Indication: DRUG USE FOR UNKNOWN INDICATION
  8. SINGULAIR [Concomitant]
     Indication: DRUG USE FOR UNKNOWN INDICATION
  9. PROZAC [Concomitant]
     Indication: DRUG USE FOR UNKNOWN INDICATION
  10. FORTEO [Concomitant]
     Indication: DRUG USE FOR UNKNOWN INDICATION

REACTIONS (5)
  - ERYTHEMA [None]
  - HEPATIC CIRRHOSIS [None]
  - HEPATITIS B [None]
  - RESPIRATORY DISTRESS [None]
  - THROMBOCYTOPENIA [None]
